FAERS Safety Report 24283112 (Version 1)
Quarter: 2024Q3

REPORT INFORMATION
  Report Type: Spontaneous
  Country: CN (occurrence: CN)
  Receive Date: 20240904
  Receipt Date: 20240904
  Transmission Date: 20241017
  Serious: Yes (Hospitalization)
  Sender: BAYER
  Company Number: CN-BAYER-2024A126407

PATIENT
  Age: 42 Year
  Sex: Male
  Weight: 80 kg

DRUGS (2)
  1. STIVARGA [Suspect]
     Active Substance: REGORAFENIB MONOHYDRATE
     Indication: Symptomatic treatment
     Dosage: 120MG D1-D21 Q4W
     Route: 048
     Dates: start: 20240426, end: 20240715
  2. SINTILIMAB [Suspect]
     Active Substance: SINTILIMAB
     Indication: Symptomatic treatment
     Dosage: 200 MG, D1 Q3W
     Route: 041
     Dates: start: 20240426, end: 20240616

REACTIONS (2)
  - Immune-mediated thyroiditis [Unknown]
  - Off label use [None]

NARRATIVE: CASE EVENT DATE: 20240426
